FAERS Safety Report 25948832 (Version 1)
Quarter: 2025Q4

REPORT INFORMATION
  Report Type: Spontaneous
  Country: EU (occurrence: EU)
  Receive Date: 20251022
  Receipt Date: 20251022
  Transmission Date: 20260117
  Serious: Yes (Other)
  Sender: BAUSCH AND LOMB
  Company Number: EU-BAUSCH-BH-2025-018828

PATIENT
  Age: 67 Year
  Sex: Male

DRUGS (3)
  1. DEXAMETHASONE [Suspect]
     Active Substance: DEXAMETHASONE
     Indication: Langerhans cell sarcoma
     Route: 065
     Dates: start: 2023
  2. CLADRIBINE [Suspect]
     Active Substance: CLADRIBINE
     Indication: Langerhans cell sarcoma
     Dosage: 6 CYCLES, CYCLE 3 AND CYCLE 5 WERE POSTPONED
     Route: 058
     Dates: start: 2023
  3. OXYGEN [Concomitant]
     Active Substance: OXYGEN
     Indication: Langerhans cell sarcoma
     Dates: start: 2023

REACTIONS (1)
  - Thrombocytopenia [Recovering/Resolving]

NARRATIVE: CASE EVENT DATE: 20230101
